FAERS Safety Report 9501962 (Version 1)
Quarter: 2013Q3

REPORT INFORMATION
  Report Type: Spontaneous
  Country: US (occurrence: US)
  Receive Date: 20130905
  Receipt Date: 20130905
  Transmission Date: 20140515
  Serious: Yes (Hospitalization)
  Sender: FDA-Public Use
  Company Number: US-MYLANLABS-2013S1019219

PATIENT
  Age: 40 Year
  Sex: Female

DRUGS (6)
  1. LITHIUM [Suspect]
     Indication: BIPOLAR DISORDER
  2. LACTATED RINGERS [Concomitant]
     Dosage: 125 ML/H
     Route: 042
  3. ARIPIPRAZOLE [Concomitant]
     Dosage: 15MG DAILY
     Route: 048
  4. PAROXETINE [Concomitant]
     Dosage: 10MG DAILY
     Route: 048
  5. PERPHENAZINE [Concomitant]
     Dosage: 32MG QHS
     Route: 048
  6. ZOLPIDEM [Concomitant]
     Dosage: 10MG QHS
     Route: 048

REACTIONS (3)
  - Hypernatraemia [Recovered/Resolved]
  - Delirium [Recovering/Resolving]
  - Nephrogenic diabetes insipidus [Recovering/Resolving]
